FAERS Safety Report 24525477 (Version 2)
Quarter: 2024Q4

REPORT INFORMATION
  Report Type: Spontaneous
  Country: US (occurrence: US)
  Receive Date: 20241020
  Receipt Date: 20241110
  Transmission Date: 20250115
  Serious: No
  Sender: SANOFI AVENTIS
  Company Number: US-SA-2024SA300883

PATIENT
  Age: 17 Year
  Sex: Male
  Weight: 145 kg

DRUGS (1)
  1. DUPIXENT [Suspect]
     Active Substance: DUPILUMAB
     Indication: Nasal polyps
     Dosage: 300 MG, QOW
     Route: 058
     Dates: start: 20240820

REACTIONS (6)
  - Nasal congestion [Unknown]
  - Anosmia [Not Recovered/Not Resolved]
  - Cough [Unknown]
  - Facial discomfort [Unknown]
  - Sinus disorder [Unknown]
  - Product dose omission issue [Unknown]

NARRATIVE: CASE EVENT DATE: 20240101
